FAERS Safety Report 12210352 (Version 3)
Quarter: 2016Q2

REPORT INFORMATION
  Report Type: Spontaneous
  Country: JP (occurrence: JP)
  Receive Date: 20160325
  Receipt Date: 20160420
  Transmission Date: 20160815
  Serious: Yes (Hospitalization)
  Sender: FDA-Public Use
  Company Number: JP-009507513-1603JPN011879

PATIENT
  Age: 79 Year
  Sex: Male

DRUGS (3)
  1. INSULIN [Concomitant]
     Active Substance: INSULIN NOS
     Indication: TYPE 2 DIABETES MELLITUS
     Dosage: UNK
  2. GLACTIV [Suspect]
     Active Substance: SITAGLIPTIN
     Indication: TYPE 2 DIABETES MELLITUS
     Dosage: UNK
     Route: 048
     Dates: start: 201312, end: 201509
  3. INSULIN [Concomitant]
     Active Substance: INSULIN NOS
     Dosage: UNK, AT THE TIME OF SURGERY
     Route: 041
     Dates: start: 201410, end: 201410

REACTIONS (1)
  - Insulin autoimmune syndrome [Unknown]

NARRATIVE: CASE EVENT DATE: 201510
